FAERS Safety Report 11942835 (Version 1)
Quarter: 2016Q1

REPORT INFORMATION
  Report Type: Spontaneous
  Country: US (occurrence: US)
  Receive Date: 20160125
  Receipt Date: 20160125
  Transmission Date: 20160526
  Serious: No
  Sender: FDA-Public Use
  Company Number: US-UNITED THERAPEUTICS-UNT-2015-012224

PATIENT
  Age: 33 Year
  Sex: Female
  Weight: 54.42 kg

DRUGS (2)
  1. OPSUMIT [Concomitant]
     Active Substance: MACITENTAN
     Indication: PRODUCT USED FOR UNKNOWN INDICATION
  2. ORENITRAM [Suspect]
     Active Substance: TREPROSTINIL
     Indication: PULMONARY HYPERTENSION
     Dosage: 0.75 MG, TID
     Route: 048
     Dates: start: 20150316

REACTIONS (11)
  - Incorrect dose administered [Unknown]
  - Pyrexia [Unknown]
  - Palpitations [Unknown]
  - Dizziness [Unknown]
  - Nasopharyngitis [Unknown]
  - Headache [Unknown]
  - Hyperhidrosis [Unknown]
  - Pain [Unknown]
  - Fatigue [Unknown]
  - Hypotension [Unknown]
  - Somnolence [Unknown]

NARRATIVE: CASE EVENT DATE: 201509
